FAERS Safety Report 5658544 (Version 4)
Quarter: 2020Q1

REPORT INFORMATION
  Report Type: Report from Study
  Country: AR (occurrence: AR)
  Receive Date: 20041104
  Receipt Date: 20200309
  Transmission Date: 20200409
  Serious: Yes (Death, Hospitalization)
  Sender: FDA-Public Use
  Company Number: PHHO2004AR14934

PATIENT
  Age: 63 Year
  Sex: Male

DRUGS (6)
  1. PREDNISONE. [Suspect]
     Active Substance: PREDNISONE
     Indication: RENAL TRANSPLANT
     Dosage: UNK, NO TREATMENT
     Route: 065
  2. MYCOPHENOLIC ACID. [Suspect]
     Active Substance: MYCOPHENOLIC ACID
     Dosage: 720 MG, BID
     Route: 048
     Dates: start: 20040811, end: 20041020
  3. NEORAL [Suspect]
     Active Substance: CYCLOSPORINE
     Dosage: 400 MG, QD
     Route: 048
     Dates: start: 20041005
  4. PREDNISONE. [Suspect]
     Active Substance: PREDNISONE
     Dosage: 20 MG, QD
     Route: 048
     Dates: start: 20040825
  5. MYCOPHENOLIC ACID. [Suspect]
     Active Substance: MYCOPHENOLIC ACID
     Indication: RENAL TRANSPLANT
     Dosage: UNK, NO TREATMENT
     Route: 065
  6. NEORAL [Suspect]
     Active Substance: CYCLOSPORINE
     Indication: RENAL TRANSPLANT
     Dosage: UNK, NO TREATMENT
     Route: 065

REACTIONS (12)
  - Sepsis [Fatal]
  - Arthralgia [Fatal]
  - Bacterial infection [Fatal]
  - Gait inability [Fatal]
  - Pyrexia [Fatal]
  - Pain in extremity [Fatal]
  - Seizure [Fatal]
  - Renal impairment [Not Recovered/Not Resolved]
  - Renal tubular necrosis [Unknown]
  - Hypotension [Fatal]
  - American trypanosomiasis [Fatal]
  - Joint effusion [Fatal]

NARRATIVE: CASE EVENT DATE: 20040912
